FAERS Safety Report 6942493-1 (Version None)
Quarter: 2010Q3

REPORT INFORMATION
  Report Type: 
  Country: None (occurrence: None)
  Receive Date: 20100826
  Receipt Date: 20100817
  Transmission Date: 20110219
  Serious: Yes (Hospitalization)
  Sender: FDA-Public Use
  Company Number: BR-ASTRAZENECA-2010SE38886

PATIENT
  Age: 66 Year
  Sex: Female

DRUGS (6)
  1. SEROQUEL [Suspect]
     Indication: NERVOUSNESS
     Route: 048
     Dates: start: 20080101
  2. SEROQUEL [Suspect]
     Indication: RESTLESSNESS
     Route: 048
     Dates: start: 20080101
  3. PURAN T4 [Concomitant]
     Route: 048
     Dates: start: 19980101
  4. ALPRAZOLAM [Concomitant]
     Route: 048
     Dates: start: 20080101
  5. DIAZEPAM [Concomitant]
     Route: 048
     Dates: start: 20080101
  6. GALVUS [Concomitant]
     Indication: DIABETES MELLITUS
     Route: 048
     Dates: start: 20080101

REACTIONS (4)
  - ARTHRALGIA [None]
  - HYPERCHOLESTEROLAEMIA [None]
  - JOINT DESTRUCTION [None]
  - OFF LABEL USE [None]
